FAERS Safety Report 7383581-8 (Version None)
Quarter: 2011Q1

REPORT INFORMATION
  Report Type: 
  Country: None (occurrence: None)
  Receive Date: 20110328
  Receipt Date: 20110328
  Transmission Date: 20110831
  Serious: Yes (Life-Threatening)
  Sender: FDA-Public Use
  Company Number: None

PATIENT
  Sex: Female
  Weight: 74.8435 kg

DRUGS (2)
  1. MULTIHANCE [Suspect]
     Indication: HYPOTENSION
     Dosage: 20ML ONCE IV 1 MINUTE
     Route: 042
     Dates: start: 20110316, end: 20110316
  2. MULTIHANCE [Suspect]
     Indication: BACK DISORDER
     Dosage: 20ML ONCE IV 1 MINUTE
     Route: 042
     Dates: start: 20110316, end: 20110316

REACTIONS (2)
  - CONTRAST MEDIA REACTION [None]
  - ANAPHYLACTIC REACTION [None]
